FAERS Safety Report 25268549 (Version 1)
Quarter: 2025Q2

REPORT INFORMATION
  Report Type: Spontaneous
  Country: US (occurrence: None)
  Receive Date: 20250503
  Receipt Date: 20250503
  Transmission Date: 20250717
  Serious: No
  Sender: FDA-CTU
  Company Number: None

PATIENT
  Age: 61 Year
  Sex: Female
  Weight: 47.25 kg

DRUGS (9)
  1. EZETIMIBE [Suspect]
     Active Substance: EZETIMIBE
     Indication: Blood cholesterol
     Dosage: 30 TABLET(S) DAILY ORAL
     Route: 048
     Dates: start: 20250401
  2. MYCOPHENOLIC ACID [Concomitant]
     Active Substance: MYCOPHENOLIC ACID
  3. PREDNISONE [Concomitant]
     Active Substance: PREDNISONE
  4. LOSARTAN [Concomitant]
     Active Substance: LOSARTAN
  5. FOLIC ACID [Concomitant]
     Active Substance: FOLIC ACID
  6. BIOTIN [Concomitant]
     Active Substance: BIOTIN
  7. COENZYME Q10 [Concomitant]
     Active Substance: DIETARY SUPPLEMENT\UBIDECARENONE
  8. VITAMIN D [Concomitant]
     Active Substance: VITAMIN D NOS
  9. B-Complex with C [Concomitant]

REACTIONS (3)
  - Alopecia [None]
  - Pruritus [None]
  - Formication [None]
